FAERS Safety Report 4428701-X (Version None)
Quarter: 2004Q3

REPORT INFORMATION
  Report Type: 
  Country: None (occurrence: None)
  Receive Date: 20040818
  Receipt Date: 20031215
  Transmission Date: 20050211
  Serious: No
  Sender: FDA-Public Use
  Company Number: US-BRISTOL-MYERS SQUIBB COMPANY-12457842

PATIENT
  Age: 78 Year
  Sex: Female

DRUGS (2)
  1. TEQUIN [Suspect]
     Route: 048
     Dates: start: 20031210, end: 20031210
  2. CIPRO [Concomitant]
     Route: 001
     Dates: start: 20031210

REACTIONS (4)
  - DIZZINESS [None]
  - NAUSEA [None]
  - SOMNOLENCE [None]
  - TREMOR [None]
